FAERS Safety Report 12497226 (Version 2)
Quarter: 2016Q2

REPORT INFORMATION
  Report Type: Other
  Country: DE (occurrence: DE)
  Receive Date: 20160624
  Receipt Date: 20160624
  Transmission Date: 20160815
  Serious: Yes (Death, Other)
  Sender: FDA-Public Use
  Company Number: DE-CIPLA LTD.-2016DE08103

PATIENT

DRUGS (3)
  1. QUETIAPINE. [Interacting]
     Active Substance: QUETIAPINE
     Indication: INTENTIONAL OVERDOSE
     Dosage: UNK
     Route: 048
  2. CITALOPRAM [Suspect]
     Active Substance: CITALOPRAM HYDROBROMIDE
     Indication: INTENTIONAL OVERDOSE
     Dosage: UNK
     Route: 048
  3. ETHANOL [Interacting]
     Active Substance: ALCOHOL
     Dosage: UNK
     Route: 048

REACTIONS (15)
  - Suicide attempt [Fatal]
  - Cardiac arrest [Fatal]
  - Pneumonia [Fatal]
  - Seizure [Fatal]
  - Somnolence [Fatal]
  - Overdose [Fatal]
  - Ventricular tachycardia [Fatal]
  - Intentional overdose [Unknown]
  - Heart rate increased [Unknown]
  - Delirium [Fatal]
  - Drug level increased [Unknown]
  - Coma [Fatal]
  - Arrhythmia [Fatal]
  - Pulseless electrical activity [Fatal]
  - Drug interaction [Fatal]
